FAERS Safety Report 11177197 (Version 1)
Quarter: 2015Q2

REPORT INFORMATION
  Report Type: Spontaneous
  Country: None (occurrence: None)
  Receive Date: 20150608
  Receipt Date: 20150608
  Transmission Date: 20150821
  Serious: Yes (Other)
  Sender: FDA-Public Use
  Company Number: None

PATIENT
  Age: 19 Week
  Sex: Female

DRUGS (2)
  1. LEVOTIROXINA [Concomitant]
     Active Substance: LEVOTHYROXINE SODIUM
  2. LATISSE [Suspect]
     Active Substance: BIMATOPROST
     Dosage: 1 A DAY AT NIGHT ONCE DAILY INTO THE EYE

REACTIONS (1)
  - Acne [None]

NARRATIVE: CASE EVENT DATE: 20150519
